FAERS Safety Report 7431944-4 (Version None)
Quarter: 2011Q2

REPORT INFORMATION
  Report Type: 
  Country: None (occurrence: None)
  Receive Date: 20110422
  Receipt Date: 20110418
  Transmission Date: 20111010
  Serious: Yes (Other)
  Sender: FDA-Public Use
  Company Number: BR-PFIZER INC-2011084572

PATIENT
  Age: 44 Year
  Sex: Male
  Weight: 78 kg

DRUGS (3)
  1. CHAMPIX [Suspect]
     Indication: TOBACCO USER
     Dosage: UNK
     Route: 048
     Dates: start: 20110328, end: 20110416
  2. CITALOPRAM [Concomitant]
     Indication: DEPRESSION
     Dosage: UNK
  3. TRIBULUS TERRESTRIS [Concomitant]
     Dosage: UNK

REACTIONS (2)
  - SUFFOCATION FEELING [None]
  - CHEST DISCOMFORT [None]
